FAERS Safety Report 11061581 (Version 1)
Quarter: 2015Q2

REPORT INFORMATION
  Report Type: Spontaneous
  Country: FR (occurrence: FR)
  Receive Date: 20150424
  Receipt Date: 20150424
  Transmission Date: 20150821
  Serious: Yes (Death, Hospitalization)
  Sender: FDA-Public Use
  Company Number: FR-BRISTOL-MYERS SQUIBB COMPANY-21063276

PATIENT
  Age: 40 Year
  Sex: Female

DRUGS (7)
  1. ERBITUX [Suspect]
     Active Substance: CETUXIMAB
     Indication: ADENOCARCINOMA OF COLON
     Dosage: 1 DF, UNK
     Route: 042
     Dates: start: 20140401
  2. ELOXATIN [Suspect]
     Active Substance: OXALIPLATIN
     Indication: ADENOCARCINOMA OF COLON
     Dosage: 126 MG, INTERMITTENT
     Route: 065
     Dates: start: 20140402, end: 20140519
  3. SERETIDE [Concomitant]
     Active Substance: FLUTICASONE FUROATE\SALMETEROL XINAFOATE
     Indication: PRODUCT USED FOR UNKNOWN INDICATION
     Dosage: 250 MG, BID
     Route: 065
  4. SPIRIVA [Concomitant]
     Active Substance: TIOTROPIUM BROMIDE MONOHYDRATE
     Indication: PRODUCT USED FOR UNKNOWN INDICATION
     Dosage: 1DF=1 CAPSULE IN MORNING
     Route: 065
  5. FLUORO URACIL [Suspect]
     Active Substance: FLUOROURACIL
     Indication: ADENOCARCINOMA OF COLON
     Dosage: 4.144 MG, INTERMITTENT
     Route: 042
     Dates: start: 20140402, end: 20140519
  6. SINGULAIR [Concomitant]
     Active Substance: MONTELUKAST SODIUM
     Indication: PRODUCT USED FOR UNKNOWN INDICATION
     Dosage: 10 MG, QD
     Route: 065
  7. AERIUS [Concomitant]
     Active Substance: DESLORATADINE
     Indication: PRODUCT USED FOR UNKNOWN INDICATION
     Dosage: TABS
     Route: 065

REACTIONS (9)
  - Skin fissures [Recovered/Resolved]
  - Intestinal obstruction [Fatal]
  - Mucosal inflammation [Recovered/Resolved]
  - Pancytopenia [Unknown]
  - Rash erythematous [Not Recovered/Not Resolved]
  - Folliculitis [Recovered/Resolved]
  - Xerosis [Recovered/Resolved]
  - Dermatitis allergic [Recovered/Resolved]
  - Palmar-plantar erythrodysaesthesia syndrome [Recovered/Resolved]

NARRATIVE: CASE EVENT DATE: 20140414
